FAERS Safety Report 4978646-1 (Version None)
Quarter: 2006Q2

REPORT INFORMATION
  Report Type: 
  Country: None (occurrence: None)
  Receive Date: 20060420
  Receipt Date: 20000811
  Transmission Date: 20061013
  Serious: Yes (Other)
  Sender: FDA-Public Use
  Company Number: US-MERCK-00081280

PATIENT
  Age: 67 Year
  Sex: Female

DRUGS (11)
  1. VIOXX [Suspect]
     Indication: OSTEOARTHRITIS
     Route: 048
  2. VIOXX [Suspect]
     Indication: ARTHRALGIA
     Route: 048
     Dates: start: 20000711
  3. VIOXX [Suspect]
     Route: 048
  4. ESTRATAB [Concomitant]
     Route: 065
  5. PREMARIN [Concomitant]
     Route: 065
  6. FLURAZEPAM [Concomitant]
     Route: 065
  7. LEVOTHROID [Concomitant]
     Route: 065
  8. PENICILLIN [Suspect]
     Route: 051
  9. SYNTHROID [Concomitant]
     Route: 065
  10. [THERAPY UNSPECIFIED] [Concomitant]
     Route: 061
  11. VIOXX [Suspect]
     Route: 048
     Dates: start: 20000711

REACTIONS (5)
  - ARTHRITIS [None]
  - MYOCARDIAL INFARCTION [None]
  - PRURITUS [None]
  - RASH [None]
  - URTICARIA [None]
